FAERS Safety Report 5719415-4 (Version None)
Quarter: 2008Q2

REPORT INFORMATION
  Report Type: 
  Country: None (occurrence: None)
  Receive Date: 20080428
  Receipt Date: 20080421
  Transmission Date: 20081010
  Serious: Yes (Hospitalization, Disabling, Other)
  Sender: FDA-Public Use
  Company Number: PHFR2008GB00540

PATIENT
  Age: 25 Year
  Sex: Male

DRUGS (10)
  1. CARBAMAZEPINE [Suspect]
  2. KEPPRA [Concomitant]
     Indication: EPILEPSY
     Dosage: 1000 MG, BID
     Dates: start: 20010101
  3. LAMICTAL [Concomitant]
     Indication: EPILEPSY
     Dosage: 200 MG, BID
     Dates: start: 20000101
  4. BISOPROLOL FUMARATE [Concomitant]
  5. SIMVASTATIN [Concomitant]
  6. ACETYLSALICYLIC ACID SRT [Concomitant]
  7. TRILEPTAL [Suspect]
     Dosage: 450 MG, BID
     Route: 048
     Dates: start: 20000721
  8. TRILEPTAL [Suspect]
     Dosage: TITRATED TO ZERO
     Dates: end: 20070101
  9. TRILEPTAL [Suspect]
     Dosage: 300 MG, BID
     Route: 048
     Dates: start: 20000904, end: 20070101
  10. ONDANSETRON [Concomitant]
     Indication: NAUSEA

REACTIONS (9)
  - AGEUSIA [None]
  - ATAXIA [None]
  - BALANCE DISORDER [None]
  - DIZZINESS [None]
  - MALAISE [None]
  - MUSCULAR WEAKNESS [None]
  - NAUSEA [None]
  - NEUROSIS [None]
  - WEIGHT DECREASED [None]
